FAERS Safety Report 5092403-X (Version None)
Quarter: 2006Q3

REPORT INFORMATION
  Report Type: 
  Country: None (occurrence: None)
  Receive Date: 20060825
  Receipt Date: 20060711
  Transmission Date: 20061208
  Serious: Yes (Other)
  Sender: FDA-Public Use
  Company Number: 25273

PATIENT
  Age: 70 Year
  Sex: Male

DRUGS (2)
  1. NIACIN [Suspect]
     Indication: DYSLIPIDAEMIA
     Dosage: 2000 MG DAILY PO
     Route: 048
  2. ASPIRIN [Concomitant]

REACTIONS (6)
  - BILIRUBIN CONJUGATED INCREASED [None]
  - BLOOD ALKALINE PHOSPHATASE INCREASED [None]
  - CARBOHYDRATE ANTIGEN 19-9 INCREASED [None]
  - GAMMA-GLUTAMYLTRANSFERASE INCREASED [None]
  - JAUNDICE [None]
  - WEIGHT DECREASED [None]
